FAERS Safety Report 6382405-5 (Version None)
Quarter: 2009Q3

REPORT INFORMATION
  Report Type: 
  Country: None (occurrence: None)
  Receive Date: 20090923
  Receipt Date: 20080826
  Transmission Date: 20100115
  Serious: Yes (Other)
  Sender: FDA-Public Use
  Company Number: 2008US004261

PATIENT
  Age: 55 Year
  Sex: Female

DRUGS (16)
  1. ALOXI [Suspect]
     Indication: PROPHYLAXIS OF NAUSEA AND VOMITING
     Dosage: 0.25 MG, SINGLE, IV BOLUS
     Route: 040
     Dates: start: 20071106, end: 20071106
  2. ALOXI [Suspect]
     Indication: PROPHYLAXIS OF NAUSEA AND VOMITING
     Dosage: 0.25 MG, SINGLE, IV BOLUS
     Route: 040
     Dates: start: 20071127, end: 20071127
  3. ALOXI [Suspect]
     Indication: PROPHYLAXIS OF NAUSEA AND VOMITING
     Dosage: 0.25 MG, SINGLE, IV BOLUS
     Route: 040
     Dates: start: 20071211, end: 20071211
  4. DECADRON [Concomitant]
  5. PEPCID [Concomitant]
  6. BENADRYL [Concomitant]
  7. OXALIPLATIN [Concomitant]
  8. 5-FU /000968801/(FLUOROURACIL) [Concomitant]
  9. LEUCOVORIN /00566701/(FOLINIC ACID) [Concomitant]
  10. ZYRTEC [Concomitant]
  11. EFFEXOR [Concomitant]
  12. KLONOPIN [Concomitant]
  13. HALCION [Concomitant]
  14. NEXIUM [Concomitant]
  15. AVASTIN [Concomitant]
  16. ARANESP [Concomitant]

REACTIONS (6)
  - FEELING ABNORMAL [None]
  - HYPERSENSITIVITY [None]
  - HYPOAESTHESIA ORAL [None]
  - PARAESTHESIA ORAL [None]
  - SPEECH DISORDER [None]
  - SWOLLEN TONGUE [None]
